FAERS Safety Report 21407079 (Version 1)
Quarter: 2022Q4

REPORT INFORMATION
  Report Type: Spontaneous
  Country: US (occurrence: None)
  Receive Date: 20221003
  Receipt Date: 20221003
  Transmission Date: 20230112
  Serious: Yes (Disabling)
  Sender: FDA-Public Use
  Company Number: None

PATIENT
  Age: 20 Year
  Sex: Female
  Weight: 46.17 kg

DRUGS (7)
  1. VENLAFAXINE HCL [Suspect]
     Active Substance: VENLAFAXINE HYDROCHLORIDE
     Indication: Generalised anxiety disorder
     Dosage: FREQUENCY : DAILY;?
     Route: 048
     Dates: start: 20220930
  2. VENLAFAXINE [Concomitant]
     Active Substance: VENLAFAXINE HYDROCHLORIDE
  3. TESTOSTERONE [Concomitant]
     Active Substance: TESTOSTERONE
  4. ESTRADIOL CYPIONATE [Concomitant]
     Active Substance: ESTRADIOL CYPIONATE
  5. MELATONIN [Concomitant]
     Active Substance: MELATONIN
  6. generic men^s multivitamin [Concomitant]
  7. fiber supplements [Concomitant]

REACTIONS (2)
  - Urethral pain [None]
  - Micturition urgency [None]

NARRATIVE: CASE EVENT DATE: 20221002
